FAERS Safety Report 5452185-6 (Version None)
Quarter: 2007Q3

REPORT INFORMATION
  Report Type: 
  Country: None (occurrence: None)
  Receive Date: 20070912
  Receipt Date: 20070905
  Transmission Date: 20080115
  Serious: Yes (Other)
  Sender: FDA-Public Use
  Company Number: 2007330396

PATIENT
  Sex: Male
  Weight: 110.6777 kg

DRUGS (1)
  1. NATURAL CITRUS LISTERINE (MENTHOL, METHYL SALICYLATE, EUCALYPTOL, THYM [Suspect]
     Indication: DENTAL PLAQUE
     Dosage: UNSPECIFIED 2 X DAY (2 IN 1 D), ORAL
     Route: 048
     Dates: end: 20070727

REACTIONS (3)
  - ARTHRITIS [None]
  - DIABETES MELLITUS [None]
  - THYROID DISORDER [None]
